FAERS Safety Report 12773723 (Version 1)
Quarter: 2016Q3

REPORT INFORMATION
  Report Type: Spontaneous
  Country: US (occurrence: US)
  Receive Date: 20160923
  Receipt Date: 20160923
  Transmission Date: 20161109
  Serious: No
  Sender: FDA-Public Use
  Company Number: US-009507513-1609USA010416

PATIENT
  Age: 7 Year
  Sex: Male

DRUGS (4)
  1. ZYRTEC [Concomitant]
     Active Substance: CETIRIZINE HYDROCHLORIDE
     Dosage: 5MG / ONCE DAILY
  2. EPIPEN [Concomitant]
     Active Substance: EPINEPHRINE
  3. ASMANEX [Suspect]
     Active Substance: MOMETASONE FUROATE
     Indication: BRONCHIAL HYPERREACTIVITY
     Dosage: ONCE DAILY
     Route: 055
     Dates: start: 2014
  4. FLONASE [Concomitant]
     Active Substance: FLUTICASONE PROPIONATE
     Dosage: SPRAY 2 PER NOSTRIL, TWICE DAILY

REACTIONS (2)
  - Dyspnoea [Recovering/Resolving]
  - Product quality issue [Unknown]

NARRATIVE: CASE EVENT DATE: 20160912
